APPROVED DRUG PRODUCT: MEDROL
Active Ingredient: METHYLPREDNISOLONE
Strength: 24MG
Dosage Form/Route: TABLET;ORAL
Application: N011153 | Product #005
Applicant: PFIZER INC
Approved: Approved Prior to Jan 1, 1982 | RLD: No | RS: No | Type: DISCN